FAERS Safety Report 11782698 (Version 1)
Quarter: 2015Q4

REPORT INFORMATION
  Report Type: Spontaneous
  Country: JP (occurrence: JP)
  Receive Date: 20151127
  Receipt Date: 20151127
  Transmission Date: 20160305
  Serious: Yes (Other)
  Sender: FDA-Public Use
  Company Number: JP-TAKEDA-2015MPI007969

PATIENT

DRUGS (3)
  1. VELCADE [Suspect]
     Active Substance: BORTEZOMIB
     Indication: PLASMA CELL MYELOMA
     Dosage: 1.3 MG/M2, 2/WEEK
     Route: 042
  2. DEXAMETHASONE. [Concomitant]
     Active Substance: DEXAMETHASONE
     Indication: PLASMA CELL MYELOMA
     Dosage: 20 MG/M2, UNK
     Route: 065
  3. CYCLOPHOSPHAMIDE. [Concomitant]
     Active Substance: CYCLOPHOSPHAMIDE
     Indication: PLASMA CELL MYELOMA
     Dosage: UNK
     Route: 042

REACTIONS (16)
  - Amylase increased [Unknown]
  - Proteinuria [Unknown]
  - Peripheral sensory neuropathy [Unknown]
  - Blood bilirubin increased [Unknown]
  - Thrombocytopenia [Unknown]
  - Blood creatinine increased [Unknown]
  - Rash [Unknown]
  - Gamma-glutamyltransferase increased [Unknown]
  - Diarrhoea [Unknown]
  - Hyponatraemia [Unknown]
  - Hyperglycaemia [Unknown]
  - Alanine aminotransferase increased [Unknown]
  - Constipation [Unknown]
  - Hyperkalaemia [Unknown]
  - Anaemia [Unknown]
  - Leukopenia [Unknown]
